FAERS Safety Report 8919528 (Version 1)
Quarter: 2012Q4

REPORT INFORMATION
  Report Type: 
  Country: FR (occurrence: FR)
  Receive Date: 20121121
  Receipt Date: 20121121
  Transmission Date: 20130627
  Serious: Yes (Other)
  Sender: FDA-Public Use
  Company Number: FR-TEVA-370787ISR

PATIENT
  Sex: Male

DRUGS (1)
  1. DILTIAZEM [Suspect]

REACTIONS (2)
  - Drug abuse [Unknown]
  - Nausea [Unknown]
